FAERS Safety Report 7158352-8 (Version None)
Quarter: 2010Q4

REPORT INFORMATION
  Report Type: 
  Country: None (occurrence: None)
  Receive Date: 20101214
  Receipt Date: 20100316
  Transmission Date: 20110411
  Serious: Yes (Other)
  Sender: FDA-Public Use
  Company Number: US-PFIZER INC-2010035601

PATIENT
  Sex: Female
  Weight: 45 kg

DRUGS (7)
  1. ARTHROTEC [Suspect]
     Dosage: FREQUENCY: 2X/DAY,
     Dates: start: 20061202
  2. LYRICA [Concomitant]
     Dosage: UNK
  3. FIORICET [Concomitant]
     Dosage: UNK
  4. TRAMADOL [Concomitant]
     Dosage: UNK
  5. ULTRACET [Concomitant]
     Dosage: UNK
  6. ADVAIR DISKUS 100/50 [Concomitant]
     Dosage: UNK
     Route: 055
  7. MAXAIR [Concomitant]
     Dosage: UNK
     Route: 055

REACTIONS (2)
  - DYSPNOEA [None]
  - URTICARIA [None]
